FAERS Safety Report 6018125-6 (Version None)
Quarter: 2008Q4

REPORT INFORMATION
  Report Type: 
  Country: None (occurrence: None)
  Receive Date: 20081223
  Receipt Date: 20081217
  Transmission Date: 20090506
  Serious: Yes (Other)
  Sender: FDA-Public Use
  Company Number: DE-ELI_LILLY_AND_COMPANY-DE200812004571

PATIENT
  Age: 67 Year
  Sex: Female
  Weight: 60 kg

DRUGS (1)
  1. ALIMTA [Suspect]
     Indication: METASTATIC BRONCHIAL CARCINOMA
     Dosage: 830 MG, UNKNOWN
     Route: 042
     Dates: start: 20080603, end: 20080917

REACTIONS (4)
  - BLOOD CREATININE INCREASED [None]
  - RASH [None]
  - RENAL FAILURE ACUTE [None]
  - TUBULOINTERSTITIAL NEPHRITIS [None]
